FAERS Safety Report 19779493 (Version 3)
Quarter: 2021Q4

REPORT INFORMATION
  Report Type: Spontaneous
  Country: US (occurrence: US)
  Receive Date: 20210902
  Receipt Date: 20211006
  Transmission Date: 20220303
  Serious: Yes (Other)
  Sender: FDA-Public Use
  Company Number: US-PFIZER INC-202101070339

PATIENT
  Age: 55 Year
  Sex: Female
  Weight: 82.54 kg

DRUGS (5)
  1. IBRANCE [Suspect]
     Active Substance: PALBOCICLIB
     Indication: Breast cancer metastatic
     Dosage: 100 MG, DAILY FOR 21 DAYS ON, THEN REST FOR 7 DAYS ON A 28-DAY CYCLE
     Route: 048
     Dates: start: 201605
  2. GABAPENTIN [Concomitant]
     Active Substance: GABAPENTIN
     Dosage: 100 GB CAPSULE
  3. GABAPENTIN [Concomitant]
     Active Substance: GABAPENTIN
     Dosage: 100 MG
  4. LETROZOLE [Concomitant]
     Active Substance: LETROZOLE
     Dosage: 2.5 MG
  5. DIETARY SUPPLEMENT\PROBIOTICS [Concomitant]
     Active Substance: DIETARY SUPPLEMENT\PROBIOTICS
     Dosage: UNK

REACTIONS (5)
  - Neutropenia [Unknown]
  - Gastric disorder [Unknown]
  - Jaundice [Unknown]
  - Alopecia [Unknown]
  - COVID-19 [Unknown]
